FAERS Safety Report 8255434-4 (Version None)
Quarter: 2012Q1

REPORT INFORMATION
  Report Type: 
  Country: None (occurrence: None)
  Receive Date: 20120322
  Receipt Date: 20111123
  Transmission Date: 20120608
  Serious: Yes (Hospitalization)
  Sender: FDA-Public Use
  Company Number: UTC-012740

PATIENT
  Age: 75 Year
  Sex: Female
  Weight: 46.8 kg

DRUGS (5)
  1. TYVASO [Suspect]
     Indication: COR PULMONALE CHRONIC
     Dosage: 216 MCG (54 MCG, 4 IN 1 D), INHALATION
     Route: 055
     Dates: start: 20100526
  2. ASPIRIN [Concomitant]
  3. DIURETICS (DIURETICS) [Concomitant]
  4. REVATIO [Concomitant]
  5. NIFEDIPINE [Concomitant]

REACTIONS (3)
  - VOMITING [None]
  - HYPOTENSION [None]
  - FINGER AMPUTATION [None]
